FAERS Safety Report 8512949-9 (Version None)
Quarter: 2012Q3

REPORT INFORMATION
  Report Type: 
  Country: None (occurrence: None)
  Receive Date: 20120716
  Receipt Date: 20120702
  Transmission Date: 20120928
  Serious: Yes (Death, Hospitalization)
  Sender: FDA-Public Use
  Company Number: US-MYLANLABS-2012S1013453

PATIENT
  Age: 65 Year
  Sex: Male

DRUGS (5)
  1. SODIUM DIOCTYL SULFOSUCCINATE [Concomitant]
     Indication: PROPHYLAXIS
     Route: 065
  2. CLOZAPINE [Suspect]
     Dosage: 100 MG/DAY
     Route: 065
  3. OLANZAPINE [Suspect]
     Indication: SCHIZOPHRENIA
     Dosage: 30 MG/DAY; GRADUALLY REDUCED
     Route: 065
  4. CLOZAPINE [Suspect]
     Indication: SCHIZOPHRENIA
     Dosage: INITIAL DOSAGE NOT STATED; INCREASED BY 12.5 MG/DAY
     Route: 065
  5. OLANZAPINE [Suspect]
     Dosage: 10 MG/DAY
     Route: 065

REACTIONS (7)
  - MALAISE [None]
  - HYPOTENSION [None]
  - TACHYPNOEA [None]
  - DECREASED APPETITE [None]
  - TACHYCARDIA [None]
  - ILEUS PARALYTIC [None]
  - DIARRHOEA [None]
